FAERS Safety Report 4644383-6 (Version None)
Quarter: 2005Q2

REPORT INFORMATION
  Report Type: 
  Country: None (occurrence: None)
  Receive Date: 20050331
  Receipt Date: 20041215
  Transmission Date: 20051028
  Serious: No
  Sender: FDA-Public Use
  Company Number: 04P-163-0283875-00

PATIENT
  Age: 82 Year
  Sex: Female
  Weight: 115 kg

DRUGS (4)
  1. HUMIRA [Suspect]
     Indication: RHEUMATOID ARTHRITIS
     Dosage: 40 MG, 1 IN 2 WK, SUBCUTANEOUS
     Route: 058
     Dates: start: 20040623, end: 20040915
  2. ESOMEPRAZOLE [Concomitant]
  3. LEVOTHYROXINE SODIUM [Concomitant]
  4. PREDNISONE [Concomitant]

REACTIONS (6)
  - ALOPECIA [None]
  - ASTHENOPIA [None]
  - HYPOTHYROIDISM [None]
  - NASOPHARYNGITIS [None]
  - PALPITATIONS [None]
  - SINUSITIS [None]
